FAERS Safety Report 23538567 (Version 1)
Quarter: 2024Q1

REPORT INFORMATION
  Report Type: Spontaneous
  Country: GB (occurrence: GB)
  Receive Date: 20240219
  Receipt Date: 20240219
  Transmission Date: 20240410
  Serious: Yes (Death, Other)
  Sender: FDA-Public Use
  Company Number: GB-AMGEN-GBRSP2024031613

PATIENT

DRUGS (6)
  1. ADALIMUMAB [Suspect]
     Active Substance: ADALIMUMAB\ISOPROPYL ALCOHOL
     Indication: Crohn^s disease
     Dosage: UNK
     Route: 065
  2. VEDOLIZUMAB [Concomitant]
     Active Substance: VEDOLIZUMAB
     Indication: Crohn^s disease
     Dosage: UNK
     Route: 065
  3. USTEKINUMAB [Concomitant]
     Active Substance: USTEKINUMAB
     Indication: Crohn^s disease
     Dosage: UNK
     Route: 065
  4. INFLIXIMAB [Concomitant]
     Active Substance: INFLIXIMAB
     Indication: Crohn^s disease
     Dosage: UNK
     Route: 065
  5. CERTOLIZUMAB [Concomitant]
     Active Substance: CERTOLIZUMAB
     Indication: Crohn^s disease
     Dosage: UNK
     Route: 065
  6. GOLIMUMAB [Concomitant]
     Active Substance: GOLIMUMAB
     Indication: Crohn^s disease
     Dosage: UNK
     Route: 065

REACTIONS (13)
  - Renal failure [Fatal]
  - Haemorrhage intracranial [Fatal]
  - Death [Fatal]
  - Neoplasm malignant [Fatal]
  - Infection [Fatal]
  - Hepatic failure [Fatal]
  - Liver disorder [Unknown]
  - Crohn^s disease [Unknown]
  - Rectal cancer [Unknown]
  - Adenoma benign [Unknown]
  - Abdominal infection [Unknown]
  - Abdominal sepsis [Unknown]
  - Respiratory tract infection [Unknown]
